FAERS Safety Report 7843821-5 (Version None)
Quarter: 2011Q4

REPORT INFORMATION
  Report Type: 
  Country: None (occurrence: None)
  Receive Date: 20111025
  Receipt Date: 20111012
  Transmission Date: 20120403
  Serious: Yes (Other)
  Sender: FDA-Public Use
  Company Number: US-BAYER-2011-049616

PATIENT
  Age: 22 Year
  Sex: Female
  Weight: 75 kg

DRUGS (3)
  1. YAZ [Suspect]
     Dosage: UNK
     Dates: start: 20070301, end: 20090801
  2. LEXAPRO [Concomitant]
     Indication: ANXIETY
     Dosage: 10 MG, QD
     Route: 048
  3. YASMIN [Suspect]
     Dosage: UNK
     Dates: start: 20070301, end: 20090801

REACTIONS (8)
  - GENERAL PHYSICAL HEALTH DETERIORATION [None]
  - CHOLECYSTITIS [None]
  - EMOTIONAL DISTRESS [None]
  - BILIARY DYSKINESIA [None]
  - PAIN [None]
  - ANXIETY [None]
  - INJURY [None]
  - GALLBLADDER DISORDER [None]
